FAERS Safety Report 22161565 (Version 1)
Quarter: 2023Q1

REPORT INFORMATION
  Report Type: Other
  Country: CA (occurrence: None)
  Receive Date: 20230331
  Receipt Date: 20230331
  Transmission Date: 20230417
  Serious: Yes (Hospitalization, Other)
  Sender: FDA-Public Use
  Company Number: CA-ROCHE-1746898

PATIENT
  Age: 76 Year
  Sex: Female

DRUGS (13)
  1. ACTEMRA [Suspect]
     Active Substance: TOCILIZUMAB
     Indication: Rheumatoid arthritis
     Route: 058
     Dates: start: 20160407, end: 20160616
  2. ACTEMRA [Suspect]
     Active Substance: TOCILIZUMAB
     Dosage: 162 MG/ BI-WEEKLY
     Route: 058
     Dates: start: 201705
  3. ACTEMRA [Suspect]
     Active Substance: TOCILIZUMAB
     Route: 058
     Dates: start: 20170608
  4. ACTEMRA [Suspect]
     Active Substance: TOCILIZUMAB
     Route: 058
     Dates: start: 20160714, end: 20170427
  5. ACTEMRA [Suspect]
     Active Substance: TOCILIZUMAB
     Dosage: DISCONTINUED
     Route: 058
     Dates: start: 20170511, end: 20230322
  6. ACTEMRA [Suspect]
     Active Substance: TOCILIZUMAB
     Route: 058
     Dates: start: 20160728
  7. ALENDRONATE [Concomitant]
     Active Substance: ALENDRONATE SODIUM
     Indication: Product used for unknown indication
  8. SERTRALINE [Concomitant]
     Active Substance: SERTRALINE HYDROCHLORIDE
  9. BISOPROLOL [Concomitant]
     Active Substance: BISOPROLOL
  10. METHOTREXATE [Concomitant]
     Active Substance: METHOTREXATE
  11. ORENCIA [Concomitant]
     Active Substance: ABATACEPT
  12. FOLIC ACID [Concomitant]
     Active Substance: FOLIC ACID
  13. TYLENOL [Concomitant]
     Active Substance: ACETAMINOPHEN

REACTIONS (47)
  - Panic attack [Unknown]
  - Stress [Recovered/Resolved]
  - Hypertension [Unknown]
  - Injection site haemorrhage [Recovered/Resolved]
  - Hypertension [Unknown]
  - Fatigue [Unknown]
  - Injection site pain [Unknown]
  - Pain in extremity [Not Recovered/Not Resolved]
  - Wheezing [Not Recovered/Not Resolved]
  - Cough [Not Recovered/Not Resolved]
  - Hypersensitivity [Unknown]
  - Blood pressure increased [Unknown]
  - Oxygen saturation decreased [Unknown]
  - Musculoskeletal stiffness [Recovered/Resolved]
  - Oropharyngeal pain [Recovered/Resolved]
  - Cold sweat [Recovered/Resolved]
  - Drug ineffective [Unknown]
  - Arthralgia [Unknown]
  - Nasopharyngitis [Unknown]
  - Abdominal discomfort [Recovered/Resolved]
  - Dermatitis [Recovering/Resolving]
  - Acne [Unknown]
  - Dry skin [Unknown]
  - Abdominal discomfort [Unknown]
  - Diarrhoea [Recovered/Resolved]
  - Asthenia [Unknown]
  - Dizziness [Unknown]
  - Fatigue [Unknown]
  - Rheumatoid arthritis [Not Recovered/Not Resolved]
  - Abdominal tenderness [Unknown]
  - Medication error [Unknown]
  - Blood pressure systolic increased [Unknown]
  - Tremor [Not Recovered/Not Resolved]
  - Asthenia [Not Recovered/Not Resolved]
  - Dizziness [Not Recovered/Not Resolved]
  - Heart rate increased [Unknown]
  - Migraine [Unknown]
  - Headache [Unknown]
  - Heart rate irregular [Unknown]
  - Malaise [Unknown]
  - Chest pain [Unknown]
  - Hernia repair [Unknown]
  - Peripheral swelling [Not Recovered/Not Resolved]
  - Throat irritation [Unknown]
  - Upper respiratory tract congestion [Unknown]
  - Feeling abnormal [Recovered/Resolved]
  - Diverticulitis [Unknown]

NARRATIVE: CASE EVENT DATE: 20160504
